FAERS Safety Report 10951688 (Version 1)
Quarter: 2015Q1

REPORT INFORMATION
  Report Type: Report from Study
  Country: GR (occurrence: GR)
  Receive Date: 20150324
  Receipt Date: 20150324
  Transmission Date: 20150721
  Serious: Yes (Hospitalization)
  Sender: FDA-Public Use
  Company Number: PHHY2015GR033054

PATIENT
  Sex: Female

DRUGS (2)
  1. QUETIAPINE [Concomitant]
     Active Substance: QUETIAPINE
     Indication: PRODUCT USED FOR UNKNOWN INDICATION
     Route: 065
  2. EXELON PATCH [Suspect]
     Active Substance: RIVASTIGMINE
     Indication: DEMENTIA
     Route: 062

REACTIONS (5)
  - Feeding disorder [Unknown]
  - Movement disorder [Unknown]
  - Incontinence [Unknown]
  - Cholecystitis [Unknown]
  - Ataxia [Unknown]
